FAERS Safety Report 5825490-9 (Version None)
Quarter: 2008Q3

REPORT INFORMATION
  Report Type: 
  Country: None (occurrence: None)
  Receive Date: 20080725
  Receipt Date: 20080725
  Transmission Date: 20090109
  Serious: Yes (Other)
  Sender: FDA-Public Use
  Company Number: None

PATIENT
  Age: 37 Year
  Sex: Female
  Weight: 81.6475 kg

DRUGS (2)
  1. SINGULAIR [Suspect]
     Indication: ASTHMA
     Dosage: 10 MG. DAILY PO
     Route: 048
  2. SINGULAIR [Suspect]
     Indication: MULTIPLE ALLERGIES
     Dosage: 10 MG. DAILY PO
     Route: 048

REACTIONS (8)
  - AGGRESSION [None]
  - APATHY [None]
  - DEPRESSION [None]
  - FEELING ABNORMAL [None]
  - FEELING OF DESPAIR [None]
  - MOOD SWINGS [None]
  - SUICIDAL IDEATION [None]
  - TEARFULNESS [None]
